FAERS Safety Report 6632889-X (Version None)
Quarter: 2010Q1

REPORT INFORMATION
  Report Type: 
  Country: None (occurrence: None)
  Receive Date: 20100312
  Receipt Date: 20100208
  Transmission Date: 20100710
  Serious: No
  Sender: FDA-Public Use
  Company Number: US-BIOGENIDEC-2010BI004816

PATIENT
  Sex: Female

DRUGS (5)
  1. AVONEX [Suspect]
     Indication: MULTIPLE SCLEROSIS
  2. LAMISIL [Concomitant]
     Route: 048
  3. CYMBALTA [Concomitant]
  4. DEXTROMETHORPHAN [Concomitant]
  5. CAFFEINE CITRATE [Concomitant]

REACTIONS (2)
  - DRUG INTERACTION [None]
  - ENZYME INHIBITION [None]
